FAERS Safety Report 8690748 (Version 2)
Quarter: 2013Q2

REPORT INFORMATION
  Report Type: Spontaneous
  Country: US (occurrence: US)
  Receive Date: 20120727
  Receipt Date: 20130626
  Transmission Date: 20140414
  Serious: Yes (Hospitalization)
  Sender: FDA-Public Use
  Company Number: US-ASTRAZENECA-2012SE14036

PATIENT
  Age: 51 Year
  Sex: Female
  Weight: 68 kg

DRUGS (7)
  1. SEROQUEL XR [Suspect]
     Indication: BIPOLAR II DISORDER
     Route: 048
  2. SEROQUEL XR [Suspect]
     Indication: DEPRESSION
     Route: 048
  3. KLONOPIN [Suspect]
  4. CYMBALTA [Suspect]
  5. SYNTHROID [Suspect]
  6. COGENTIN [Suspect]
  7. WELLBUTRIN [Suspect]

REACTIONS (2)
  - Depression [Unknown]
  - Fibromyalgia [Unknown]
